FAERS Safety Report 8977673 (Version 2)
Quarter: 2013Q1

REPORT INFORMATION
  Report Type: Spontaneous
  Country: US (occurrence: US)
  Receive Date: 20121219
  Receipt Date: 20130211
  Transmission Date: 20140127
  Serious: Yes (Hospitalization)
  Sender: FDA-Public Use
  Company Number: US-SANOFI-AVENTIS-2012SA090473

PATIENT
  Age: 73 Year
  Sex: Female
  Weight: 135 kg

DRUGS (6)
  1. LANTUS SOLOSTAR [Suspect]
     Indication: TYPE 2 DIABETES MELLITUS
     Dosage: DOSE:10 UNIT(S)
     Route: 058
     Dates: start: 201105
  2. SOLOSTAR [Suspect]
     Indication: TYPE 2 DIABETES MELLITUS
  3. HYDROXYUREA [Concomitant]
     Indication: BONE MARROW DISORDER
  4. VERAPAMIL [Concomitant]
     Indication: HYPERTENSION
  5. IPRATROPIUM [Concomitant]
  6. SALBUTAMOL SULFATE [Concomitant]

REACTIONS (5)
  - Intervertebral disc protrusion [Recovering/Resolving]
  - Chronic obstructive pulmonary disease [Unknown]
  - Dehydration [Recovered/Resolved]
  - Blood potassium abnormal [Recovered/Resolved]
  - Blood glucose increased [Unknown]
